FAERS Safety Report 18531784 (Version 4)
Quarter: 2021Q1

REPORT INFORMATION
  Report Type: Report from Study
  Country: FR (occurrence: FR)
  Receive Date: 20201123
  Receipt Date: 20210330
  Transmission Date: 20210419
  Serious: Yes (Death, Hospitalization, Other)
  Sender: FDA-Public Use
  Company Number: FR-BRISTOL-MYERS SQUIBB COMPANY-BMS-2020-081303

PATIENT
  Age: 80 Year
  Sex: Male
  Weight: 77 kg

DRUGS (2)
  1. APIXABAN [Suspect]
     Active Substance: APIXABAN
     Indication: EMBOLISM VENOUS
     Dosage: 5 MG TWICE A DAY OR 2.5 MG TWICE A DAY ACCORDING TO THE RANDOMIZATION GROUP
     Route: 048
     Dates: start: 20190919, end: 20200929
  2. APIXABAN [Suspect]
     Active Substance: APIXABAN
     Dosage: 2.5 MILLIGRAM, BID
     Route: 048

REACTIONS (8)
  - Metastases to liver [Fatal]
  - Arthralgia [Fatal]
  - Anaemia [Unknown]
  - Pulmonary sepsis [Unknown]
  - Back pain [Fatal]
  - Plasma cell myeloma [Fatal]
  - Cardiac failure [Unknown]
  - Colorectal adenocarcinoma [Fatal]

NARRATIVE: CASE EVENT DATE: 20200908
